FAERS Safety Report 5236936-1 (Version None)
Quarter: 2007Q1

REPORT INFORMATION
  Report Type: 
  Country: None (occurrence: None)
  Receive Date: 20070213
  Receipt Date: 20070131
  Transmission Date: 20070707
  Serious: Yes (Other)
  Sender: FDA-Public Use
  Company Number: PHBS2007JP02089

PATIENT
  Age: 31 Year
  Sex: Female

DRUGS (3)
  1. PARLODEL [Suspect]
     Route: 048
  2. HYDROXYPROGESTERONE CAPROATE [Concomitant]
  3. ESTRADIOL DIPROPIONATE [Concomitant]

REACTIONS (6)
  - BENIGN PANCREATIC NEOPLASM [None]
  - BREAST FEEDING [None]
  - DRUG EXPOSURE DURING PREGNANCY [None]
  - NORMAL DELIVERY [None]
  - PANCREATECTOMY [None]
  - SPLENECTOMY [None]
